FAERS Safety Report 11744787 (Version 2)
Quarter: 2015Q4

REPORT INFORMATION
  Report Type: Spontaneous
  Country: IE (occurrence: IE)
  Receive Date: 20151116
  Receipt Date: 20151202
  Transmission Date: 20160304
  Serious: Yes (Death, Life-Threatening, Congenital Anomaly, Other)
  Sender: FDA-Public Use
  Company Number: PHFR2015IE008756

PATIENT
  Sex: Female

DRUGS (2)
  1. FOLIC ACID. [Suspect]
     Active Substance: FOLIC ACID
     Indication: FOETAL EXPOSURE DURING PREGNANCY
     Dosage: MATERNAL DOSE: 5 MG QD
     Route: 064
  2. TRILEPTAL [Suspect]
     Active Substance: OXCARBAZEPINE
     Indication: FOETAL EXPOSURE DURING PREGNANCY
     Dosage: MATERNAL DOSE: 150 MG TID
     Route: 064

REACTIONS (1)
  - Congenital diaphragmatic hernia [Fatal]

NARRATIVE: CASE EVENT DATE: 201510
